FAERS Safety Report 11653932 (Version 1)
Quarter: 2015Q4

REPORT INFORMATION
  Report Type: Spontaneous
  Country: DE (occurrence: DE)
  Receive Date: 20151022
  Receipt Date: 20151022
  Transmission Date: 20160304
  Serious: Yes (Hospitalization)
  Sender: FDA-Public Use
  Company Number: DE-TEVA-555819GER

PATIENT
  Age: 31 Year
  Sex: Male
  Weight: 66 kg

DRUGS (2)
  1. CIPROFLOXACIN. [Suspect]
     Active Substance: CIPROFLOXACIN
     Indication: PHARYNGITIS
     Dosage: 1000 MILLIGRAM DAILY;
     Route: 048
     Dates: start: 20150129, end: 20150201
  2. CIPROFLOXACIN. [Suspect]
     Active Substance: CIPROFLOXACIN
     Indication: LARYNGITIS

REACTIONS (22)
  - Arthropathy [Recovering/Resolving]
  - Lip swelling [Unknown]
  - Disturbance in attention [Unknown]
  - Disturbance in attention [Recovering/Resolving]
  - Pain in extremity [Unknown]
  - Urticaria [Recovering/Resolving]
  - Skin discolouration [Unknown]
  - Alopecia [Recovering/Resolving]
  - Abdominal discomfort [Unknown]
  - Faeces discoloured [Unknown]
  - Musculoskeletal pain [Unknown]
  - Tendonitis [Recovering/Resolving]
  - Tendon pain [Unknown]
  - Arthralgia [Recovering/Resolving]
  - Blood pressure decreased [Unknown]
  - Joint swelling [Unknown]
  - Breast discomfort [Unknown]
  - Yellow skin [Recovering/Resolving]
  - Ocular discomfort [Recovering/Resolving]
  - Gastrointestinal pain [Unknown]
  - Paraesthesia [Unknown]
  - Chromaturia [Unknown]

NARRATIVE: CASE EVENT DATE: 20150201
